FAERS Safety Report 14135496 (Version 2)
Quarter: 2018Q1

REPORT INFORMATION
  Report Type: Report from Study
  Country: US (occurrence: US)
  Receive Date: 20171026
  Receipt Date: 20180123
  Transmission Date: 20180508
  Serious: No
  Sender: FDA-Public Use
  Company Number: US-AMGEN-USASL2017133994

PATIENT
  Age: 73 Year
  Sex: Female

DRUGS (2)
  1. REPATHA [Suspect]
     Active Substance: EVOLOCUMAB
     Indication: PRODUCT USED FOR UNKNOWN INDICATION
     Dosage: UNK
     Route: 058
     Dates: end: 201612
  2. REPATHA [Suspect]
     Active Substance: EVOLOCUMAB
     Dosage: 420 MG, QMO
     Route: 058

REACTIONS (2)
  - Drug dose omission [Unknown]
  - Application site pain [Unknown]
